FAERS Safety Report 17282923 (Version 5)
Quarter: 2020Q3

REPORT INFORMATION
  Report Type: Spontaneous
  Country: US (occurrence: US)
  Receive Date: 20200117
  Receipt Date: 20200728
  Transmission Date: 20201102
  Serious: No
  Sender: FDA-Public Use
  Company Number: US-ASTRAZENECA-2020SE03577

PATIENT
  Age: 58 Year
  Sex: Female

DRUGS (1)
  1. ZOMIG [Suspect]
     Active Substance: ZOLMITRIPTAN
     Indication: MIGRAINE
     Dosage: 1 SPRAY IN 1 NOSTRIL AT ONSET OF MIGRAINE, MAY REPEAT IN 2 HOURS IF NEEDED. (DO NOT EXCEED 10MG I...
     Route: 045

REACTIONS (4)
  - Dry mouth [Unknown]
  - Memory impairment [Unknown]
  - Product dose omission issue [Unknown]
  - Migraine [Unknown]

NARRATIVE: CASE EVENT DATE: 20200710
